FAERS Safety Report 23388891 (Version 3)
Quarter: 2024Q1

REPORT INFORMATION
  Report Type: Spontaneous
  Country: IT (occurrence: IT)
  Receive Date: 20240110
  Receipt Date: 20240207
  Transmission Date: 20240410
  Serious: Yes (Hospitalization)
  Sender: FDA-Public Use
  Company Number: IT-JUVISE-2023008925

PATIENT
  Age: 54 Year
  Sex: Female

DRUGS (3)
  1. PACLITAXEL [Suspect]
     Active Substance: PACLITAXEL
     Indication: Chemotherapy
     Dosage: FOUR CYCLES AT THE DOSE OF 80/300 MG/M2
     Route: 065
  2. CYCLOPHOSPHAMIDE\DOXORUBICIN [Suspect]
     Active Substance: CYCLOPHOSPHAMIDE\DOXORUBICIN
     Indication: Adjuvant therapy
     Dosage: 60-600 MG/M2 FOUR CYCLES EVERY THREE WEEKS
     Route: 065
  3. ARIMIDEX [Suspect]
     Active Substance: ANASTROZOLE
     Indication: Chemotherapy
     Dosage: 20 MILLIGRAM, QD (IN A SINGLE DAILY DOSE)
     Route: 048

REACTIONS (8)
  - Pain [Recovered/Resolved]
  - Muscle spasms [Unknown]
  - Insomnia [Unknown]
  - Fatigue [Recovered/Resolved]
  - Asthenia [Unknown]
  - Intentional product use issue [Unknown]
  - Off label use [Unknown]
  - Myalgia [Recovered/Resolved]
